FAERS Safety Report 16815192 (Version 1)
Quarter: 2019Q3

REPORT INFORMATION
  Report Type: Spontaneous
  Country: US (occurrence: US)
  Receive Date: 20190917
  Receipt Date: 20190917
  Transmission Date: 20191005
  Serious: No
  Sender: FDA-Public Use
  Company Number: US-MYLANLABS-2019M1083233

PATIENT
  Sex: Female
  Weight: 58.96 kg

DRUGS (1)
  1. ESTRADIOL TRANSDERMAL SYSTEM [Suspect]
     Active Substance: ESTRADIOL
     Indication: PRODUCT USED FOR UNKNOWN INDICATION
     Dosage: UNK UNK, BIWEEKLY (CHANGE TWICE PER WEEK)
     Route: 062
     Dates: start: 201612

REACTIONS (4)
  - Skin irritation [Not Recovered/Not Resolved]
  - Application site erythema [Unknown]
  - Product residue present [Not Recovered/Not Resolved]
  - Application site pruritus [Unknown]

NARRATIVE: CASE EVENT DATE: 2019
